FAERS Safety Report 18432634 (Version 16)
Quarter: 2021Q4

REPORT INFORMATION
  Report Type: Report from Study
  Country: CL (occurrence: None)
  Receive Date: 20201027
  Receipt Date: 20211217
  Transmission Date: 20220303
  Serious: Yes (Hospitalization)
  Sender: FDA-Public Use
  Company Number: CL-EISAI MEDICAL RESEARCH-EC-2020-082759

PATIENT
  Age: 57 Year
  Sex: Male
  Weight: 68 kg

DRUGS (12)
  1. LENVATINIB [Suspect]
     Active Substance: LENVATINIB
     Indication: Non-small cell lung cancer metastatic
     Route: 048
     Dates: start: 20200915, end: 20201021
  2. PEMBROLIZUMAB [Suspect]
     Active Substance: PEMBROLIZUMAB
     Indication: Non-small cell lung cancer metastatic
     Route: 041
     Dates: start: 20200915, end: 20200915
  3. PEMBROLIZUMAB [Suspect]
     Active Substance: PEMBROLIZUMAB
     Route: 041
     Dates: start: 20201007, end: 20201007
  4. PEMETREXED [Suspect]
     Active Substance: PEMETREXED
     Indication: Non-small cell lung cancer metastatic
     Route: 041
     Dates: start: 20200915, end: 20200915
  5. PEMETREXED [Suspect]
     Active Substance: PEMETREXED
     Route: 041
     Dates: start: 20201007, end: 20201007
  6. CELECOXIB [Concomitant]
     Active Substance: CELECOXIB
     Dates: start: 20200930, end: 20210119
  7. TRAMADOL [Concomitant]
     Active Substance: TRAMADOL
     Dates: start: 20200911, end: 20210119
  8. CODEINE [Concomitant]
     Active Substance: CODEINE
     Dates: start: 20200930, end: 20210119
  9. CRONUS [Concomitant]
     Dates: start: 20200930, end: 20210119
  10. METOCLOPRAMIDE [Concomitant]
     Active Substance: METOCLOPRAMIDE
     Dates: start: 20200930, end: 20210119
  11. OMEPRAZOLE [Concomitant]
     Active Substance: OMEPRAZOLE
     Dates: start: 20200930, end: 20201211
  12. CARBOPLATIN [Concomitant]
     Active Substance: CARBOPLATIN
     Dates: start: 20200915, end: 20201007

REACTIONS (3)
  - Pulmonary infarction [Recovered/Resolved]
  - Pneumonia [Recovered/Resolved]
  - Pleural effusion [Not Recovered/Not Resolved]

NARRATIVE: CASE EVENT DATE: 20201021
